FAERS Safety Report 7522531-8 (Version None)
Quarter: 2011Q2

REPORT INFORMATION
  Report Type: 
  Country: None (occurrence: None)
  Receive Date: 20110525
  Receipt Date: 20110517
  Transmission Date: 20111010
  Serious: Yes (Other)
  Sender: FDA-Public Use
  Company Number: NSR_00234_2011

PATIENT
  Sex: Female
  Weight: 95.2554 kg

DRUGS (6)
  1. TRIAMTERENE [Concomitant]
  2. SYNTHROID [Concomitant]
  3. FLUOXETINE [Suspect]
     Indication: ANXIETY
     Dosage: (20 MG QD ORAL)
     Route: 048
     Dates: start: 20110506, end: 20110514
  4. FLUOXETINE [Suspect]
     Indication: DEPRESSION
     Dosage: (20 MG QD ORAL)
     Route: 048
     Dates: start: 20110506, end: 20110514
  5. FLUOXETINE HCL [Concomitant]
  6. SINEQUAN [Concomitant]

REACTIONS (8)
  - GENERAL PHYSICAL HEALTH DETERIORATION [None]
  - DEPRESSION [None]
  - DRUG INEFFECTIVE [None]
  - ANXIETY [None]
  - BEDRIDDEN [None]
  - AGITATION [None]
  - PRODUCT QUALITY ISSUE [None]
  - DISTURBANCE IN ATTENTION [None]
